FAERS Safety Report 14914875 (Version 2)
Quarter: 2022Q1

REPORT INFORMATION
  Report Type: Spontaneous
  Country: SA (occurrence: SA)
  Receive Date: 20180518
  Receipt Date: 20220130
  Transmission Date: 20220424
  Serious: Yes (Other)
  Sender: FDA-Public Use
  Company Number: SA-JAZZ-2018-SA-007769

PATIENT

DRUGS (1)
  1. DEFIBROTIDE [Suspect]
     Active Substance: DEFIBROTIDE (BOVINE)
     Indication: Prophylaxis

REACTIONS (2)
  - Venoocclusive disease [Unknown]
  - Off label use [Unknown]
